FAERS Safety Report 6305857-5 (Version None)
Quarter: 2009Q3

REPORT INFORMATION
  Report Type: 
  Country: None (occurrence: None)
  Receive Date: 20090812
  Receipt Date: 20090731
  Transmission Date: 20100115
  Serious: Yes (Hospitalization, Other)
  Sender: FDA-Public Use
  Company Number: US-BRISTOL-MYERS SQUIBB COMPANY-14736029

PATIENT
  Age: 58 Year
  Sex: Male

DRUGS (15)
  1. DEFINITY [Suspect]
     Indication: LIVER TRANSPLANT
     Dosage: 1DF=0.75ML DEFINITY DILUTE IN 30ML NORMAL SALINE;GIVEN 2PER DAY;
     Route: 042
     Dates: start: 20090729, end: 20090729
  2. DEFINITY [Suspect]
     Indication: STRESS ECHOCARDIOGRAM
     Dosage: 1DF=0.75ML DEFINITY DILUTE IN 30ML NORMAL SALINE;GIVEN 2PER DAY;
     Route: 042
     Dates: start: 20090729, end: 20090729
  3. DOBUTAMINE HCL [Concomitant]
     Indication: STRESS ECHOCARDIOGRAM
     Dosage: INITIALLY 5MICROGRAM THEN 10MICROGRAM AND THEN TO 20 MICROGRAM;
     Dates: start: 20090729, end: 20090729
  4. ALDACTONE [Concomitant]
  5. ACETYLSALICYLIC ACID [Concomitant]
  6. ALLOPURINOL [Concomitant]
  7. MULTI-VITAMIN [Concomitant]
  8. IRON [Concomitant]
  9. FLUOXETINE [Concomitant]
  10. METOLAZONE [Concomitant]
  11. VICODIN [Concomitant]
  12. WARFARIN [Concomitant]
     Indication: ATRIAL FIBRILLATION
  13. SYSTANE [Concomitant]
     Dosage: SYSTANE EYE DROPS
  14. DEMADEX [Concomitant]
  15. XANAX [Concomitant]
     Indication: ANXIETY

REACTIONS (7)
  - ASTHENIA [None]
  - DRUG HYPERSENSITIVITY [None]
  - FLUSHING [None]
  - HYPOTENSION [None]
  - NAUSEA [None]
  - PRURITUS [None]
  - RASH GENERALISED [None]
